FAERS Safety Report 8059414-3 (Version None)
Quarter: 2012Q1

REPORT INFORMATION
  Report Type: 
  Country: None (occurrence: None)
  Receive Date: 20120120
  Receipt Date: 20120112
  Transmission Date: 20120608
  Serious: Yes (Hospitalization)
  Sender: FDA-Public Use
  Company Number: JP-ABBOTT-11P-087-0882836-00

PATIENT
  Sex: Female
  Weight: 55.3 kg

DRUGS (6)
  1. HUMIRA [Suspect]
     Indication: RHEUMATOID ARTHRITIS
     Route: 058
     Dates: start: 20101206, end: 20111212
  2. MAKYOYOKUKANTO [Concomitant]
     Indication: RHEUMATOID ARTHRITIS
     Route: 048
     Dates: end: 20110315
  3. KEISHIKAJUTSUBUTO [Concomitant]
     Indication: RHEUMATOID ARTHRITIS
     Route: 048
     Dates: start: 20110315
  4. ATORVASTATIN CALCIUM [Concomitant]
     Indication: DYSLIPIDAEMIA
     Route: 048
  5. NITRENDIPINE [Concomitant]
     Indication: HYPERTENSION
     Route: 048
  6. AMLODIPINE BESYLATE [Concomitant]
     Indication: HYPERTENSION
     Route: 048

REACTIONS (9)
  - BLOOD CREATINE INCREASED [None]
  - ANGIOTENSIN CONVERTING ENZYME INCREASED [None]
  - COMPUTERISED TOMOGRAM THORAX ABNORMAL [None]
  - SARCOIDOSIS [None]
  - TUBULOINTERSTITIAL NEPHRITIS [None]
  - BLOOD CREATININE INCREASED [None]
  - BLOOD URINE PRESENT [None]
  - LYSOZYME INCREASED [None]
  - LYMPHADENOPATHY [None]
